FAERS Safety Report 10240830 (Version 1)
Quarter: 2014Q2

REPORT INFORMATION
  Report Type: Spontaneous
  Country: US (occurrence: US)
  Receive Date: 20140617
  Receipt Date: 20140617
  Transmission Date: 20141212
  Serious: Yes (Hospitalization)
  Sender: FDA-Public Use
  Company Number: US-ROCHE-CID000000003400069

PATIENT
  Age: 93 Year
  Sex: Female

DRUGS (6)
  1. RANIBIZUMAB [Suspect]
     Indication: AGE-RELATED MACULAR DEGENERATION
     Route: 050
  2. LEVETIRACETAM [Suspect]
     Indication: AGE-RELATED MACULAR DEGENERATION
     Route: 065
  3. AMLODIPINE [Concomitant]
  4. LATANOPROST [Concomitant]
  5. PILOCARPINE [Concomitant]
  6. BETAXOLOL [Concomitant]

REACTIONS (10)
  - Fall [Unknown]
  - Confusional state [Unknown]
  - Delirium [Unknown]
  - Abnormal behaviour [Unknown]
  - Disturbance in attention [Unknown]
  - Hallucination, visual [Unknown]
  - Agitation [Unknown]
  - Aggression [Unknown]
  - Electroencephalogram abnormal [Unknown]
  - Sedation [Unknown]
